FAERS Safety Report 11091940 (Version 1)
Quarter: 2015Q2

REPORT INFORMATION
  Report Type: Spontaneous
  Country: US (occurrence: US)
  Receive Date: 20150505
  Receipt Date: 20150505
  Transmission Date: 20150821
  Serious: No
  Sender: FDA-Public Use
  Company Number: US-BAYER-2015-184662

PATIENT
  Age: 59 Year
  Sex: Female
  Weight: 73 kg

DRUGS (1)
  1. CLARITIN-D 12 HOUR [Suspect]
     Active Substance: LORATADINE\PSEUDOEPHEDRINE SULFATE
     Indication: PARANASAL SINUS DISCOMFORT
     Dosage: 1 DF, BID
     Route: 048
     Dates: start: 20150410, end: 20150413

REACTIONS (1)
  - Drug ineffective [Unknown]

NARRATIVE: CASE EVENT DATE: 20150410
